FAERS Safety Report 6728607-7 (Version None)
Quarter: 2010Q2

REPORT INFORMATION
  Report Type: 
  Country: None (occurrence: None)
  Receive Date: 20100517
  Receipt Date: 20100512
  Transmission Date: 20101027
  Serious: Yes (Death)
  Sender: FDA-Public Use
  Company Number: US-GILEAD-2010-0029147

PATIENT
  Sex: Female

DRUGS (25)
  1. LETAIRIS [Suspect]
     Indication: PULMONARY ARTERIAL HYPERTENSION
     Route: 048
     Dates: start: 20090715, end: 20100511
  2. REVATIO [Concomitant]
  3. COUMADIN [Concomitant]
  4. LASIX [Concomitant]
  5. NORVASC [Concomitant]
  6. LISINOPRIL [Concomitant]
  7. DUONEB [Concomitant]
  8. COMBIVENT [Concomitant]
  9. ADVAIR DISKUS 100/50 [Concomitant]
  10. SOLU-CORTEF [Concomitant]
  11. ZOSYN [Concomitant]
  12. VANCOMYCIN [Concomitant]
  13. PREDNISONE [Concomitant]
  14. MACROBID [Concomitant]
  15. KEFLEX [Concomitant]
  16. BACTRIM [Concomitant]
  17. NEXIUM [Concomitant]
  18. FOSAMAX [Concomitant]
  19. CELEBREX [Concomitant]
  20. GABAPENTIN [Concomitant]
  21. VALIUM [Concomitant]
  22. ZINC SULFATE [Concomitant]
  23. MULTI-VITAMIN [Concomitant]
  24. VITAMIN C [Concomitant]
  25. VITAMIN E [Concomitant]

REACTIONS (1)
  - DEATH [None]
